FAERS Safety Report 5461568-X (Version None)
Quarter: 2007Q3

REPORT INFORMATION
  Report Type: 
  Country: None (occurrence: None)
  Receive Date: 20070920
  Receipt Date: 20070911
  Transmission Date: 20080115
  Serious: Yes (Other)
  Sender: FDA-Public Use
  Company Number: HQWYE113612SEP07

PATIENT
  Sex: Female
  Weight: 59.02 kg

DRUGS (8)
  1. EFFEXOR XR [Suspect]
     Indication: MAJOR DEPRESSION
     Route: 048
     Dates: end: 20070811
  2. EFFEXOR XR [Suspect]
     Route: 048
     Dates: start: 20070812, end: 20070101
  3. EFFEXOR XR [Suspect]
     Route: 048
     Dates: start: 20070101
  4. XANAX [Concomitant]
     Route: 048
  5. SYNTHROID [Concomitant]
     Dosage: 100 MCG DAILY
     Route: 048
     Dates: start: 20070401
  6. METHYLPHENIDATE HCL [Suspect]
     Route: 048
  7. METHYLPHENIDATE HCL [Suspect]
     Route: 048
  8. CYTOMEL [Concomitant]
     Dosage: 25 MCG , ^3/4 PILL DAILY^
     Route: 048
     Dates: start: 20070401

REACTIONS (2)
  - DRUG WITHDRAWAL SYNDROME [None]
  - SUICIDAL IDEATION [None]
